FAERS Safety Report 10102560 (Version 6)
Quarter: 2014Q2

REPORT INFORMATION
  Report Type: Spontaneous
  Country: GB (occurrence: None)
  Receive Date: 20140422
  Receipt Date: 20140605
  Transmission Date: 20141212
  Serious: Yes (Disabling, Other)
  Sender: FDA-Public Use
  Company Number: AUR-APL-2014-04832

PATIENT
  Sex: Female

DRUGS (1)
  1. MIRTAZAPINE (MIRTAZAPINE) [Suspect]
     Indication: PRODUCT USED FOR UNKNOWN INDICATION
     Route: 048
     Dates: start: 20140320

REACTIONS (9)
  - Gait disturbance [None]
  - Euphoric mood [None]
  - Tremor [None]
  - Hallucination [None]
  - Abasia [None]
  - Product quality issue [None]
  - Product solubility abnormal [None]
  - Malaise [None]
  - Faeces discoloured [None]
